FAERS Safety Report 20418722 (Version 1)
Quarter: 2022Q1

REPORT INFORMATION
  Report Type: Spontaneous
  Country: BR (occurrence: None)
  Receive Date: 20220202
  Receipt Date: 20220202
  Transmission Date: 20220423
  Serious: Yes (Hospitalization, Other)
  Sender: FDA-Public Use
  Company Number: 2022A049750

PATIENT
  Age: 91 Year
  Sex: Male
  Weight: 94.5 kg

DRUGS (1)
  1. QUETIAPINE [Suspect]
     Active Substance: QUETIAPINE
     Indication: Antipsychotic therapy
     Dosage: A TABLET IN THE MORNING AND TWO TABLETS AT NIGHT
     Route: 048
     Dates: start: 20220123, end: 20220124

REACTIONS (4)
  - Delirium [Recovered/Resolved]
  - Depressed level of consciousness [Unknown]
  - Hypernatraemia [Unknown]
  - Product administration error [Unknown]

NARRATIVE: CASE EVENT DATE: 20220123
